FAERS Safety Report 11467938 (Version 1)
Quarter: 2015Q3

REPORT INFORMATION
  Report Type: Report from Study
  Country: DE (occurrence: DE)
  Receive Date: 20150908
  Receipt Date: 20150908
  Transmission Date: 20151125
  Serious: Yes (Hospitalization)
  Sender: FDA-Public Use
  Company Number: DE-SA-2015SA132380

PATIENT
  Age: 68 Year
  Sex: Female
  Weight: 57.3 kg

DRUGS (2)
  1. INSULIN [Concomitant]
     Active Substance: INSULIN NOS
     Indication: TYPE 2 DIABETES MELLITUS
     Route: 058
     Dates: start: 2002
  2. CABAZITAXEL [Suspect]
     Active Substance: CABAZITAXEL
     Indication: GLIOBLASTOMA MULTIFORME
     Route: 042
     Dates: start: 20150820, end: 20150820

REACTIONS (5)
  - Nausea [Recovered/Resolved]
  - Lymphatic disorder [Recovered/Resolved]
  - C-reactive protein increased [Recovered/Resolved]
  - Blood disorder [Recovered/Resolved]
  - Fatigue [Recovered/Resolved]

NARRATIVE: CASE EVENT DATE: 20150827
